FAERS Safety Report 22527790 (Version 3)
Quarter: 2023Q2

REPORT INFORMATION
  Report Type: Report from Study
  Country: US (occurrence: US)
  Receive Date: 20230606
  Receipt Date: 20230629
  Transmission Date: 20230721
  Serious: Yes (Hospitalization)
  Sender: FDA-Public Use
  Company Number: US-002147023-NVSC2023US129250

PATIENT
  Sex: Female

DRUGS (1)
  1. PROMACTA [Suspect]
     Active Substance: ELTROMBOPAG OLAMINE
     Indication: Immune thrombocytopenia
     Dosage: UNK
     Route: 048

REACTIONS (6)
  - Cerebrovascular accident [Unknown]
  - Constipation [Unknown]
  - Haemoglobin decreased [Unknown]
  - Flatulence [Unknown]
  - Asthenia [Unknown]
  - Myalgia [Unknown]
